FAERS Safety Report 7967745-8 (Version None)
Quarter: 2011Q4

REPORT INFORMATION
  Report Type: 
  Country: None (occurrence: None)
  Receive Date: 20111209
  Receipt Date: 20111209
  Transmission Date: 20120403
  Serious: No
  Sender: FDA-Public Use
  Company Number: None

PATIENT
  Age: 38 Year
  Sex: Male
  Weight: 116.11 kg

DRUGS (1)
  1. PROPECIA [Suspect]

REACTIONS (11)
  - ANXIETY [None]
  - FAT TISSUE INCREASED [None]
  - ANHEDONIA [None]
  - PENILE SIZE REDUCED [None]
  - DEPRESSION [None]
  - TESTICULAR ATROPHY [None]
  - MUSCLE ATROPHY [None]
  - FATIGUE [None]
  - SLEEP DISORDER [None]
  - DYSPEPSIA [None]
  - LOSS OF LIBIDO [None]
